FAERS Safety Report 5816777-4 (Version None)
Quarter: 2008Q3

REPORT INFORMATION
  Report Type: 
  Country: None (occurrence: None)
  Receive Date: 20080721
  Receipt Date: 20080714
  Transmission Date: 20090109
  Serious: Yes (Death)
  Sender: FDA-Public Use
  Company Number: MW-BOEHRINGER INGELHEIM GMBH, GERMANY-2008-DE-04141GD

PATIENT

DRUGS (4)
  1. NEVIRAPINE [Suspect]
     Indication: PROPHYLAXIS AGAINST HIV INFECTION
     Dosage: 2 MG/KG
     Route: 048
  2. NEVIRAPINE [Suspect]
     Indication: HUMAN IMMUNODEFICIENCY VIRUS TRANSMISSION
     Dosage: 2 MG/KG (SCHEDULED FOR 1 WEEK), THEN 4 MG/KG (SCHEDULED FOR 12 WEEKS)
     Route: 048
  3. ZIDOVUDINE [Suspect]
     Indication: PROPHYLAXIS AGAINST HIV INFECTION
     Dosage: 8 MG/KG
     Route: 048
  4. ZIDOVUDINE [Suspect]
     Indication: HUMAN IMMUNODEFICIENCY VIRUS TRANSMISSION
     Dosage: 4 MG/KG TWICE DAILY (SCHEDULED FOR 4 WEEKS), THEN 4 MG/KG 3 TIMES DAILY (SCHEDULED FOR 3 WEEKS), THE
     Route: 048

REACTIONS (1)
  - SUDDEN INFANT DEATH SYNDROME [None]
